FAERS Safety Report 5458667-5 (Version None)
Quarter: 2007Q3

REPORT INFORMATION
  Report Type: 
  Country: None (occurrence: None)
  Receive Date: 20070919
  Receipt Date: 20070622
  Transmission Date: 20080115
  Serious: Yes (Hospitalization)
  Sender: FDA-Public Use
  Company Number: US-ASTRAZENECA-2007UW07907

PATIENT
  Age: 545 Month
  Sex: Male

DRUGS (2)
  1. SEROQUEL [Suspect]
     Indication: BIPOLAR I DISORDER
     Route: 048
     Dates: start: 20020719, end: 20070401
  2. CYMBALTA [Concomitant]
     Indication: DEPRESSION
     Dates: start: 20050218

REACTIONS (1)
  - PRIAPISM [None]
